FAERS Safety Report 6436467-7 (Version None)
Quarter: 2009Q4

REPORT INFORMATION
  Report Type: 
  Country: None (occurrence: None)
  Receive Date: 20091110
  Receipt Date: 20091110
  Transmission Date: 20100525
  Serious: No
  Sender: FDA-Public Use
  Company Number: None

PATIENT
  Sex: Female
  Weight: 58 kg

DRUGS (1)
  1. CHORIONIC GONADOTROPIN 10000 APP, LLC [Suspect]
     Dosage: 5000 UNITS ONCE IM
     Route: 030
     Dates: start: 20091028, end: 20091028

REACTIONS (1)
  - TREATMENT FAILURE [None]
